FAERS Safety Report 15013264 (Version 1)
Quarter: 2018Q2

REPORT INFORMATION
  Report Type: Spontaneous
  Country: GB (occurrence: GB)
  Receive Date: 20180614
  Receipt Date: 20180614
  Transmission Date: 20180711
  Serious: Yes (Hospitalization)
  Sender: FDA-Public Use
  Company Number: GB-FRESENIUS KABI-FK201806823

PATIENT
  Age: 59 Year
  Sex: Female

DRUGS (3)
  1. GENTAMICIN (MANUFACTURER UNKNOWN) [Suspect]
     Active Substance: GENTAMICIN
     Indication: INFECTION
     Route: 042
  2. ACICLOVIR [Concomitant]
     Active Substance: ACYCLOVIR
     Indication: PRODUCT USED FOR UNKNOWN INDICATION
     Route: 042
  3. CLINDAMYCIN. [Suspect]
     Active Substance: CLINDAMYCIN
     Indication: INFECTION
     Route: 042

REACTIONS (2)
  - Hyperammonaemic encephalopathy [Recovered/Resolved]
  - Gastrointestinal bacterial overgrowth [Recovered/Resolved]
